FAERS Safety Report 18340420 (Version 3)
Quarter: 2022Q3

REPORT INFORMATION
  Report Type: Spontaneous
  Country: PT (occurrence: PT)
  Receive Date: 20201002
  Receipt Date: 20220929
  Transmission Date: 20221027
  Serious: Yes (Death, Hospitalization, Other)
  Sender: FDA-Public Use
  Company Number: None

PATIENT

DRUGS (2)
  1. PITAVASTATIN [Suspect]
     Active Substance: PITAVASTATIN
     Indication: Dyslipidaemia
     Dosage: 4 MG
  2. ATORVASTATIN [Suspect]
     Active Substance: ATORVASTATIN
     Indication: Dyslipidaemia
     Dosage: 40 MG

REACTIONS (8)
  - Immune-mediated myositis [Fatal]
  - Pneumonia bacterial [Fatal]
  - Weight decreased [Fatal]
  - Gait disturbance [Fatal]
  - Decreased appetite [Fatal]
  - Muscular weakness [Fatal]
  - Asthenia [Fatal]
  - Myalgia [Fatal]
